FAERS Safety Report 4930793-6 (Version None)
Quarter: 2006Q1

REPORT INFORMATION
  Report Type: 
  Country: None (occurrence: None)
  Receive Date: 20060227
  Receipt Date: 20060131
  Transmission Date: 20060701
  Serious: Yes (Hospitalization)
  Sender: FDA-Public Use
  Company Number: 2006024528

PATIENT
  Age: 42 Year
  Sex: Female
  Weight: 49 kg

DRUGS (2)
  1. SERTRALINE HCL [Suspect]
     Indication: ILL-DEFINED DISORDER
     Dosage: 50 MG (50 MG, 1 IN 1 D), ORAL
     Route: 048
  2. VITAMIN B-COMPLEX OTHER COMBINATIONS (VITAMIN B-COMPLEX OTHER COMBINAT [Concomitant]

REACTIONS (5)
  - ARTHRALGIA [None]
  - DEPRESSED LEVEL OF CONSCIOUSNESS [None]
  - DYSARTHRIA [None]
  - EXTRAPYRAMIDAL DISORDER [None]
  - PAIN [None]
